FAERS Safety Report 9314112 (Version 1)
Quarter: 2013Q2

REPORT INFORMATION
  Report Type: Spontaneous
  Country: US (occurrence: US)
  Receive Date: 20130529
  Receipt Date: 20130529
  Transmission Date: 20140414
  Serious: Yes (Other)
  Sender: FDA-Public Use
  Company Number: US-SANOFI-AVENTIS-2013SA054080

PATIENT
  Age: 81 Year
  Sex: Female

DRUGS (4)
  1. LANTUS SOLOSTAR [Suspect]
     Indication: TYPE 2 DIABETES MELLITUS
     Dosage: START DATE: ABOUT 5 YEARS AGO
     Route: 058
  2. SOLOSTAR [Suspect]
     Indication: TYPE 2 DIABETES MELLITUS
     Dosage: START DATE: ABOUT 5 YEARS AGO
  3. ARICEPT [Concomitant]
  4. VICTOZA [Concomitant]

REACTIONS (2)
  - Dementia [Unknown]
  - Hypoacusis [Unknown]
